FAERS Safety Report 4459813-2 (Version None)
Quarter: 2004Q3

REPORT INFORMATION
  Report Type: 
  Country: None (occurrence: None)
  Receive Date: 20040928
  Receipt Date: 20031017
  Transmission Date: 20050211
  Serious: No
  Sender: FDA-Public Use
  Company Number: US-BRISTOL-MYERS SQUIBB COMPANY-12413571

PATIENT
  Age: 59 Year
  Sex: Female
  Weight: 88 kg

DRUGS (2)
  1. TRIMOX [Suspect]
     Indication: ENDODONTIC PROCEDURE
     Route: 048
     Dates: start: 20031016
  2. CELEBREX [Concomitant]

REACTIONS (2)
  - FEELING ABNORMAL [None]
  - PAIN [None]
